FAERS Safety Report 21131441 (Version 1)
Quarter: 2022Q3

REPORT INFORMATION
  Report Type: Spontaneous
  Country: US (occurrence: US)
  Receive Date: 20220726
  Receipt Date: 20220726
  Transmission Date: 20221026
  Serious: Yes (Hospitalization)
  Sender: FDA-Public Use
  Company Number: US-STRIDES ARCOLAB LIMITED-2021SP028668

PATIENT
  Age: 67 Year
  Sex: Female

DRUGS (2)
  1. AMANTADINE HYDROCHLORIDE [Suspect]
     Active Substance: AMANTADINE HYDROCHLORIDE
     Indication: Parkinson^s disease
     Dosage: UNK (LONG ACTING)
     Route: 065
  2. LEVODOPA [Concomitant]
     Active Substance: LEVODOPA
     Indication: Parkinson^s disease
     Dosage: UNK (LEVODOPA EQUIVALENT DOSE OF AN UNSPECIFIED THERAPY)
     Route: 065

REACTIONS (1)
  - Therapy non-responder [Unknown]
